FAERS Safety Report 21465760 (Version 1)
Quarter: 2022Q4

REPORT INFORMATION
  Report Type: Spontaneous
  Country: US (occurrence: US)
  Receive Date: 20221017
  Receipt Date: 20221017
  Transmission Date: 20230112
  Serious: Yes (Other)
  Sender: FDA-Public Use
  Company Number: US-PURDUE PHARMA-USA-2022-0297221

PATIENT
  Sex: Female

DRUGS (4)
  1. OXYCONTIN [Suspect]
     Active Substance: OXYCODONE HYDROCHLORIDE
     Indication: Product used for unknown indication
     Dosage: UNK
     Route: 065
  2. HUMIRA [Suspect]
     Active Substance: ADALIMUMAB
     Indication: Hidradenitis
     Dosage: UNK
     Route: 058
  3. MODERNA COVID-19 VACCINE [Suspect]
     Active Substance: ELASOMERAN
     Indication: Product used for unknown indication
     Dosage: UNK
     Route: 030
     Dates: start: 20210322, end: 20210322
  4. MODERNA COVID-19 VACCINE [Suspect]
     Active Substance: ELASOMERAN
     Dosage: UNK
     Route: 030
     Dates: start: 20210226, end: 20210226

REACTIONS (10)
  - Liver injury [Unknown]
  - Cholecystectomy [Recovered/Resolved]
  - Glucose tolerance impaired [Unknown]
  - Liver disorder [Recovering/Resolving]
  - Blood potassium decreased [Unknown]
  - Insomnia [Recovering/Resolving]
  - Pain [Recovering/Resolving]
  - Enzyme level increased [Recovering/Resolving]
  - Intervertebral disc disorder [Unknown]
  - Drug interaction [Unknown]
